FAERS Safety Report 14068979 (Version 3)
Quarter: 2018Q1

REPORT INFORMATION
  Report Type: Report from Study
  Country: GB (occurrence: GB)
  Receive Date: 20171010
  Receipt Date: 20180223
  Transmission Date: 20180508
  Serious: Yes (Hospitalization)
  Sender: FDA-Public Use
  Company Number: GB-TAIHO ONCOLOGY INC-JPTT170472

PATIENT
  Age: 83 Year
  Sex: Female
  Weight: 73 kg

DRUGS (5)
  1. BEVACIZUMAB 5MG/KG - CONTROL GROUP [Suspect]
     Active Substance: BEVACIZUMAB
     Indication: ADENOCARCINOMA OF COLON
     Dosage: 365 MG (5 MG/KG), ON DAY 1 AND 15 OF EACH 28-DAY CYCLE
     Route: 042
     Dates: start: 20170321, end: 20170404
  2. LONSURF [Suspect]
     Active Substance: TIPIRACIL HYDROCHLORIDE\TRIFLURIDINE
     Indication: ADENOCARCINOMA OF COLON
     Dosage: 60 MG (35MG/M2) BID, ON DAYS 1-5 AND 8-12 OF EACH 28-DAY CYCLE
     Route: 048
     Dates: start: 20170321, end: 20170401
  3. LOSARTAN POTASSIUM. [Concomitant]
     Active Substance: LOSARTAN POTASSIUM
     Indication: HYPERTENSION
     Dosage: 100 MG, QD
     Route: 048
  4. DOXYCYCLINE HYDROCHLORIDE [Concomitant]
     Active Substance: DOXYCYCLINE HYDROCHLORIDE
     Indication: INFECTION
     Dosage: 100 MG, QD
     Route: 048
     Dates: start: 20170316
  5. AMLODIPINE BESILATE [Concomitant]
     Active Substance: AMLODIPINE BESYLATE
     Indication: HYPERTENSION
     Dosage: 5 MG, QD
     Route: 048
     Dates: start: 20170404, end: 20170530

REACTIONS (3)
  - Pulmonary oedema [Recovered/Resolved]
  - Neutropenic sepsis [Recovered/Resolved]
  - Atrial fibrillation [Recovered/Resolved]

NARRATIVE: CASE EVENT DATE: 20170409
